FAERS Safety Report 15050493 (Version 1)
Quarter: 2018Q2

REPORT INFORMATION
  Report Type: Spontaneous
  Country: GB (occurrence: GB)
  Receive Date: 20180622
  Receipt Date: 20180622
  Transmission Date: 20180711
  Serious: Yes (Hospitalization)
  Sender: FDA-Public Use
  Company Number: GB-CELLTRION INC.-2018GB020734

PATIENT

DRUGS (2)
  1. 6-MERCAPTOPURINE MONOHYDRATE [Concomitant]
     Active Substance: MERCAPTOPURINE
     Indication: CROHN^S DISEASE
     Route: 065
  2. INFLIXIMAB (UNKNOWN) [Suspect]
     Active Substance: INFLIXIMAB
     Indication: CROHN^S DISEASE
     Route: 065

REACTIONS (2)
  - Condition aggravated [Unknown]
  - Inflammatory bowel disease [Unknown]

NARRATIVE: CASE EVENT DATE: 2017
